FAERS Safety Report 8176311-3 (Version None)
Quarter: 2012Q1

REPORT INFORMATION
  Report Type: 
  Country: None (occurrence: None)
  Receive Date: 20120301
  Receipt Date: 20120222
  Transmission Date: 20120608
  Serious: Yes (Hospitalization, Other)
  Sender: FDA-Public Use
  Company Number: BR-SANOFI-AVENTIS-2012SA012105

PATIENT
  Age: 67 Year
  Sex: Female
  Weight: 95 kg

DRUGS (11)
  1. COLECALCIFEROL/RETINOL ACETATE [Concomitant]
     Indication: BONE DISORDER
     Dosage: FORM: DROPS
     Route: 048
     Dates: start: 20111201
  2. CLONAZEPAM [Concomitant]
     Indication: IRRITABILITY
     Route: 048
     Dates: start: 19920101
  3. SIMVASTATIN [Concomitant]
     Route: 048
     Dates: start: 20070101
  4. OMEPRAZOLE [Concomitant]
     Indication: GASTRIC DISORDER
     Route: 048
     Dates: start: 20110101
  5. LEVOTHYROXINE SODIUM [Concomitant]
     Indication: HYPOTHYROIDISM
     Dosage: STRENGTH: 325MCG DOSE:3.5 TABLETS DAILY
     Route: 048
     Dates: start: 20000101
  6. SOMALGIN [Concomitant]
     Dosage: STRENGTH: 200MG
     Route: 048
  7. LOSARTAN POTASSIUM [Concomitant]
     Indication: BLOOD PRESSURE
     Route: 048
  8. LANTUS [Suspect]
     Indication: TYPE 2 DIABETES MELLITUS
     Route: 058
     Dates: start: 20050101
  9. AMIODARONE HCL [Concomitant]
     Indication: ARRHYTHMIA
     Route: 048
     Dates: start: 20020101
  10. METFORMIN HCL [Concomitant]
     Indication: TYPE 2 DIABETES MELLITUS
     Dosage: STRENGTH: 850MG
     Route: 048
     Dates: start: 19880101
  11. LASIX [Concomitant]
     Indication: BLOOD PRESSURE
     Route: 048
     Dates: start: 20020101

REACTIONS (10)
  - UPPER LIMB FRACTURE [None]
  - MUSCULOSKELETAL STIFFNESS [None]
  - THROMBOSIS [None]
  - INFARCTION [None]
  - DIABETIC NEUROPATHY [None]
  - HYPOAESTHESIA [None]
  - HYPERGLYCAEMIA [None]
  - CHEST PAIN [None]
  - PAIN IN EXTREMITY [None]
  - SENSATION OF HEAVINESS [None]
